FAERS Safety Report 4809151-0 (Version None)
Quarter: 2005Q4

REPORT INFORMATION
  Report Type: 
  Country: None (occurrence: None)
  Receive Date: 20051021
  Receipt Date: 20051007
  Transmission Date: 20060501
  Serious: Yes (Hospitalization)
  Sender: FDA-Public Use
  Company Number: RENA-11568

PATIENT
  Age: 59 Year
  Sex: Female

DRUGS (1)
  1. PHOSBLOCK - 250 MG TABLET [Suspect]
     Indication: HYPERPHOSPHATAEMIA
     Dates: start: 20040630

REACTIONS (1)
  - FLUID RETENTION [None]
